FAERS Safety Report 19744534 (Version 1)
Quarter: 2021Q3

REPORT INFORMATION
  Report Type: Spontaneous
  Country: US (occurrence: US)
  Receive Date: 20210823
  Receipt Date: 20210823
  Transmission Date: 20211014
  Serious: No
  Sender: FDA-Public Use
  Company Number: None

PATIENT
  Age: 51 Year
  Sex: Female

DRUGS (1)
  1. HUMIRA [Suspect]
     Active Substance: ADALIMUMAB
     Indication: ACUTE HAEMORRHAGIC ULCERATIVE COLITIS
     Dosage: OTHER
     Route: 058
     Dates: start: 202106

REACTIONS (3)
  - Pruritus [None]
  - Urticaria [None]
  - Pustule [None]

NARRATIVE: CASE EVENT DATE: 20210813
